FAERS Safety Report 8816406 (Version 1)
Quarter: 2012Q4

REPORT INFORMATION
  Report Type: Spontaneous
  Country: US (occurrence: None)
  Receive Date: 20120928
  Receipt Date: 20120928
  Transmission Date: 20130627
  Serious: Yes (Hospitalization)
  Sender: FDA-Public Use
  Company Number: None

PATIENT
  Age: 57 Year
  Sex: Male
  Weight: 90.5 kg

DRUGS (2)
  1. BACTRIM [Suspect]
     Indication: HAEMATOMA INFECTION
     Dosage: recent
     Route: 048
  2. KEFLEX [Concomitant]

REACTIONS (3)
  - Blood potassium increased [None]
  - Renal failure acute [None]
  - Renal tubular necrosis [None]
